FAERS Safety Report 4370195-7 (Version None)
Quarter: 2004Q2

REPORT INFORMATION
  Report Type: 
  Country: None (occurrence: None)
  Receive Date: 20040603
  Receipt Date: 20040407
  Transmission Date: 20050107
  Serious: Yes (Hospitalization)
  Sender: FDA-Public Use
  Company Number: US-BRISTOL-MYERS SQUIBB COMPANY-12558342

PATIENT
  Age: 5 Decade
  Sex: Male

DRUGS (2)
  1. ABILIFY [Suspect]
     Dosage: EITHER 5 OR 10 MG/DAY
     Route: 048
  2. PAXIL [Interacting]

REACTIONS (2)
  - DEEP VEIN THROMBOSIS [None]
  - DRUG INTERACTION [None]
